FAERS Safety Report 9587429 (Version 2)
Quarter: 2013Q4

REPORT INFORMATION
  Report Type: Spontaneous
  Country: DE (occurrence: DE)
  Receive Date: 20131003
  Receipt Date: 20131121
  Transmission Date: 20140711
  Serious: Yes (Hospitalization)
  Sender: FDA-Public Use
  Company Number: PHHY2013DE109034

PATIENT
  Sex: Male

DRUGS (2)
  1. LEPONEX [Suspect]
     Indication: PSYCHOTIC DISORDER
     Dosage: 1 DF (400 MG), QD
     Route: 048
     Dates: start: 201211, end: 201310
  2. TREVILOR - SLOW RELEASE [Concomitant]
     Dosage: 225 MG, PER DAY
     Route: 048
     Dates: start: 2012

REACTIONS (4)
  - Ejection fraction decreased [Recovered/Resolved with Sequelae]
  - Coronary artery disease [Recovered/Resolved with Sequelae]
  - Mitral valve incompetence [Recovered/Resolved with Sequelae]
  - Myocardial infarction [Recovered/Resolved with Sequelae]
